FAERS Safety Report 16114539 (Version 3)
Quarter: 2019Q3

REPORT INFORMATION
  Report Type: Spontaneous
  Country: US (occurrence: US)
  Receive Date: 20190325
  Receipt Date: 20190710
  Transmission Date: 20191004
  Serious: Yes (Life-Threatening, Hospitalization)
  Sender: FDA-Public Use
  Company Number: US-BIOGEN-2019BI00710866

PATIENT
  Age: 7 Month
  Sex: Male
  Weight: 5.99 kg

DRUGS (5)
  1. AVXS-101 [Suspect]
     Active Substance: ONASEMNOGENE ABEPARVOVEC
     Indication: SPINAL MUSCULAR ATROPHY
     Route: 065
     Dates: start: 20190115, end: 20190115
  2. SPINRAZA [Suspect]
     Active Substance: NUSINERSEN
     Indication: SPINAL MUSCULAR ATROPHY
     Dosage: 1ST LOADING DOSE: 21 AUG 2018, 2ND LOADING DOSE: 04 SEP 2018, 3RD LOADING DOSE: 18 SEP 2018, 4TH ...
     Route: 065
     Dates: start: 20180821
  3. PHYTONADIONE. [Concomitant]
     Active Substance: PHYTONADIONE
     Indication: PRODUCT USED FOR UNKNOWN INDICATION
     Route: 065
     Dates: start: 20190307
  4. RANITIDINE. [Concomitant]
     Active Substance: RANITIDINE
     Indication: PRODUCT USED FOR UNKNOWN INDICATION
     Route: 065
  5. LACTULOSE. [Concomitant]
     Active Substance: LACTULOSE
     Indication: PRODUCT USED FOR UNKNOWN INDICATION
     Dosage: STRENGTH = 10GM/15ML
     Route: 065

REACTIONS (3)
  - Hepatitis [Unknown]
  - Hepatic fibrosis [Unknown]
  - Acute hepatic failure [Unknown]

NARRATIVE: CASE EVENT DATE: 20190308
